FAERS Safety Report 19248295 (Version 2)
Quarter: 2022Q1

REPORT INFORMATION
  Report Type: Spontaneous
  Country: US (occurrence: US)
  Receive Date: 20210512
  Receipt Date: 20220127
  Transmission Date: 20220423
  Serious: No
  Sender: FDA-Public Use
  Company Number: US-PFIZER INC-2021476812

PATIENT
  Age: 63 Year
  Sex: Female

DRUGS (1)
  1. IBRANCE [Suspect]
     Active Substance: PALBOCICLIB
     Indication: Breast cancer female
     Dosage: 75 MG, 1X/DAY
     Route: 048
     Dates: start: 20210505

REACTIONS (3)
  - Asthenia [Unknown]
  - White blood cell count decreased [Unknown]
  - Product dose omission issue [Unknown]
